FAERS Safety Report 4778607-1 (Version None)
Quarter: 2005Q3

REPORT INFORMATION
  Report Type: 
  Country: None (occurrence: None)
  Receive Date: 20050922
  Receipt Date: 20050913
  Transmission Date: 20060218
  Serious: Yes (Hospitalization)
  Sender: FDA-Public Use
  Company Number: 2005117219

PATIENT
  Age: 59 Year
  Sex: Female
  Weight: 73.4827 kg

DRUGS (6)
  1. EXEMESTANE [Suspect]
     Indication: BREAST CANCER
     Dosage: 25  MG (25 MG, 1 IN 1 D), ORAL
     Route: 048
     Dates: start: 20030220
  2. MULTIVITAMIN [Concomitant]
  3. VITAMIN E [Concomitant]
  4. CALCIUM (CALCIUM) [Concomitant]
  5. GLUCOSAMINE (GLUCOSAMINE) [Concomitant]
  6. TYLENOL PM (DIPHENHYDRAMINE, PARACETAMOL) [Concomitant]

REACTIONS (3)
  - CERVICAL DYSPLASIA [None]
  - ULCER [None]
  - VAGINAL DYSPLASIA [None]
